FAERS Safety Report 24587349 (Version 1)
Quarter: 2024Q4

REPORT INFORMATION
  Report Type: Spontaneous
  Country: GB (occurrence: GB)
  Receive Date: 20241107
  Receipt Date: 20241107
  Transmission Date: 20250114
  Serious: Yes (Life-Threatening, Hospitalization, Other)
  Sender: AUROBINDO
  Company Number: GB-SANOFI-02182761

PATIENT
  Sex: Male

DRUGS (32)
  1. FUROSEMIDE [Suspect]
     Active Substance: FUROSEMIDE
     Indication: Generalised oedema
     Dosage: UNK
     Route: 065
     Dates: start: 20240506, end: 20240512
  2. FUROSEMIDE [Suspect]
     Active Substance: FUROSEMIDE
     Dosage: 40 MILLIGRAM, ONCE A DAY
     Route: 065
     Dates: start: 20240521, end: 20240527
  3. FUROSEMIDE [Suspect]
     Active Substance: FUROSEMIDE
     Dosage: 40 MILLIGRAM, ONCE A DAY
     Route: 065
     Dates: start: 20240531
  4. FUROSEMIDE [Suspect]
     Active Substance: FUROSEMIDE
     Dosage: 120 MILLIGRAM, ONCE A DAY
     Route: 065
     Dates: start: 20240613, end: 20240619
  5. FUROSEMIDE [Suspect]
     Active Substance: FUROSEMIDE
     Dosage: 80 MILLIGRAM, ONCE A DAY
     Route: 065
     Dates: start: 20240620, end: 20240626
  6. FUROSEMIDE [Suspect]
     Active Substance: FUROSEMIDE
     Dosage: 40 MILLIGRAM, ONCE A DAY
     Route: 065
     Dates: start: 20240627, end: 20240701
  7. FUROSEMIDE [Suspect]
     Active Substance: FUROSEMIDE
     Dosage: 160 MILLIGRAM, ONCE A DAY
     Route: 065
     Dates: start: 20240702, end: 20240708
  8. HYDROCHLOROTHIAZIDE [Suspect]
     Active Substance: HYDROCHLOROTHIAZIDE
     Indication: Product used for unknown indication
     Dosage: 50 MILLIGRAM, ONCE A DAY
     Route: 048
     Dates: start: 20240702, end: 20240708
  9. TRIPTORELIN [Concomitant]
     Active Substance: TRIPTORELIN
     Indication: Product used for unknown indication
     Dosage: UNK
     Route: 065
     Dates: start: 20240502
  10. DENOSUMAB [Concomitant]
     Active Substance: DENOSUMAB
     Indication: Product used for unknown indication
     Dosage: UNK
     Route: 065
     Dates: start: 20231002
  11. CALCIUM CARBONATE\CHOLECALCIFEROL [Concomitant]
     Active Substance: CALCIUM CARBONATE\CHOLECALCIFEROL
     Indication: Product used for unknown indication
     Dosage: UNK
     Route: 065
     Dates: start: 20240221
  12. BISOPROLOL [Concomitant]
     Active Substance: BISOPROLOL\BISOPROLOL FUMARATE
     Indication: Product used for unknown indication
     Dosage: UNK
     Route: 065
  13. FLECAINIDE ACETATE [Concomitant]
     Active Substance: FLECAINIDE ACETATE
     Indication: Product used for unknown indication
     Dosage: UNK
     Route: 065
  14. GLICLAZIDE [Concomitant]
     Active Substance: GLICLAZIDE
     Indication: Product used for unknown indication
     Dosage: UNK
     Route: 065
  15. APIXABAN [Concomitant]
     Active Substance: APIXABAN
     Indication: Product used for unknown indication
     Dosage: UNK
     Route: 065
  16. ATORVASTATIN CALCIUM\EZETIMIBE [Concomitant]
     Active Substance: ATORVASTATIN CALCIUM\EZETIMIBE
     Indication: Product used for unknown indication
     Dosage: UNK
     Route: 065
  17. COPPER SULFATE;SUCRALFATE;ZINC OXIDE;ZINC SULFATE [Concomitant]
     Indication: Product used for unknown indication
     Dosage: UNK
     Route: 065
     Dates: start: 20231228
  18. BETAMETHASONE [Concomitant]
     Active Substance: BETAMETHASONE
     Indication: Product used for unknown indication
     Dosage: UNK
     Route: 065
     Dates: start: 20231228
  19. Calcium chloride dihydrate;Carmellose;Potassium chloride;Sodium chlori [Concomitant]
     Indication: Product used for unknown indication
     Dosage: UNK
     Route: 065
     Dates: start: 20231229
  20. OXICONAZOLE [Concomitant]
     Active Substance: OXICONAZOLE
     Indication: Product used for unknown indication
     Dosage: UNK
     Route: 065
     Dates: start: 20240215
  21. Amiloxate;Avobenzone;Bemotrizinol;Bisoctrizole;Octinoxate;Octyl triazo [Concomitant]
     Indication: Product used for unknown indication
     Dosage: UNK
     Route: 065
     Dates: start: 20240131
  22. ALPRAZOLAM [Concomitant]
     Active Substance: ALPRAZOLAM
     Indication: Product used for unknown indication
     Dosage: UNK
     Route: 065
     Dates: start: 20240415
  23. UNSPECIFIED INGREDIENT [Concomitant]
     Active Substance: UNSPECIFIED INGREDIENT
     Indication: Product used for unknown indication
     Dosage: UNK
     Route: 065
     Dates: start: 20240417
  24. ACETAMINOPHEN [Concomitant]
     Active Substance: ACETAMINOPHEN
     Indication: Product used for unknown indication
     Dosage: UNK
     Route: 065
     Dates: start: 20240321
  25. HYALURONATE SODIUM [Concomitant]
     Active Substance: HYALURONATE SODIUM
     Indication: Product used for unknown indication
     Dosage: UNK
     Route: 065
     Dates: start: 20240513
  26. PREDNISOLONE [Concomitant]
     Active Substance: PREDNISOLONE
     Indication: Product used for unknown indication
     Dosage: 3 DOSAGE FORM, ONCE A DAY
     Route: 065
     Dates: start: 20240613, end: 20240619
  27. PREDNISOLONE [Concomitant]
     Active Substance: PREDNISOLONE
     Dosage: 2 DOSAGE FORM, ONCE A DAY
     Route: 065
     Dates: start: 20240620, end: 20240626
  28. PREDNISOLONE [Concomitant]
     Active Substance: PREDNISOLONE
     Dosage: 1 DOSAGE FORM, ONCE A DAY
     Route: 065
     Dates: start: 20240627, end: 20240701
  29. PREDNISOLONE [Concomitant]
     Active Substance: PREDNISOLONE
     Dosage: 1 DOSAGE FORM, ONCE A DAY
     Route: 065
     Dates: start: 20240704, end: 20240708
  30. PREDNISOLONE [Concomitant]
     Active Substance: PREDNISOLONE
     Dosage: 60 MILLIGRAM, ONCE A DAY
     Route: 065
     Dates: start: 20240715
  31. POTASSIUM CHLORIDE [Concomitant]
     Active Substance: POTASSIUM CHLORIDE
     Indication: Prophylaxis
     Dosage: 1 DOSAGE FORM, TWO TIMES A DAY
     Route: 048
     Dates: start: 20240531
  32. POTASSIUM CHLORIDE [Concomitant]
     Active Substance: POTASSIUM CHLORIDE
     Dosage: 1 DOSAGE FORM, 3 TIMES A DAY
     Route: 048
     Dates: start: 20240702

REACTIONS (2)
  - Hypokalaemia [Recovered/Resolved]
  - Acute kidney injury [Recovering/Resolving]

NARRATIVE: CASE EVENT DATE: 20240705
